FAERS Safety Report 4809728-2 (Version None)
Quarter: 2005Q4

REPORT INFORMATION
  Report Type: 
  Country: None (occurrence: None)
  Receive Date: 20051024
  Receipt Date: 20051013
  Transmission Date: 20060501
  Serious: Yes (Other)
  Sender: FDA-Public Use
  Company Number: US015992

PATIENT
  Age: 40 Year
  Sex: Male

DRUGS (1)
  1. PROVIGIL [Suspect]
     Indication: SOMNOLENCE
     Dosage: 200 MG QD ORAL
     Route: 048
     Dates: start: 20050210, end: 20050401

REACTIONS (2)
  - ANTIPHOSPHOLIPID ANTIBODIES [None]
  - PULMONARY EMBOLISM [None]
